FAERS Safety Report 5262360-1 (Version None)
Quarter: 2007Q1

REPORT INFORMATION
  Report Type: 
  Country: None (occurrence: None)
  Receive Date: 20070308
  Receipt Date: 20070227
  Transmission Date: 20070707
  Serious: Yes (Hospitalization, Other)
  Sender: FDA-Public Use
  Company Number: 200620850GDDC

PATIENT
  Age: 62 Year
  Weight: 63 kg

DRUGS (7)
  1. TAXOTERE [Suspect]
     Indication: NON-SMALL CELL LUNG CANCER
     Dosage: 42.5 MG
     Dates: start: 20060906, end: 20060906
  2. CISPLATIN [Suspect]
     Indication: NON-SMALL CELL LUNG CANCER
     Dosage: 42.5 MG
     Dates: start: 20060906, end: 20060906
  3. GEMZAR [Suspect]
     Indication: NON-SMALL CELL LUNG CANCER
     Dosage: 1200 MG/M*2; IV
     Route: 042
     Dates: start: 20060929, end: 20060929
  4. MELOXICAM [Concomitant]
  5. PREGABALIN [Concomitant]
  6. LEVODROPROPIZINE [Concomitant]
  7. ASPIRIN [Concomitant]

REACTIONS (7)
  - ANAEMIA [None]
  - BONE MARROW TOXICITY [None]
  - CARDIAC FAILURE [None]
  - LEUKOPENIA [None]
  - NEUTROPENIA [None]
  - OEDEMA PERIPHERAL [None]
  - PETECHIAE [None]
